FAERS Safety Report 22234378 (Version 1)
Quarter: 2023Q2

REPORT INFORMATION
  Report Type: Spontaneous
  Country: US (occurrence: None)
  Receive Date: 20230420
  Receipt Date: 20230420
  Transmission Date: 20230722
  Serious: No
  Sender: FDA-Public Use
  Company Number: US-ROCHE-3201924

PATIENT
  Sex: Female

DRUGS (2)
  1. ESBRIET [Suspect]
     Active Substance: PIRFENIDONE
     Indication: Product used for unknown indication
     Route: 065
     Dates: start: 202207
  2. ESBRIET [Suspect]
     Active Substance: PIRFENIDONE
     Route: 065

REACTIONS (3)
  - Hot flush [Unknown]
  - Blood sodium decreased [Unknown]
  - Constipation [Unknown]

NARRATIVE: CASE EVENT DATE: 20221014
